FAERS Safety Report 14033130 (Version 1)
Quarter: 2017Q4

REPORT INFORMATION
  Report Type: Spontaneous
  Country: US (occurrence: US)
  Receive Date: 20171003
  Receipt Date: 20171003
  Transmission Date: 20180321
  Serious: No
  Sender: FDA-Public Use
  Company Number: US-PFIZER INC-2017423462

PATIENT
  Age: 58 Year
  Sex: Male
  Weight: 72.57 kg

DRUGS (4)
  1. METHADONE [Concomitant]
     Active Substance: METHADONE HYDROCHLORIDE
     Indication: PAIN
     Dosage: 5 MG, 3X/DAY (5MG TABLET, 1 TABLET 3 TIMES A DAY BY MOUTH)
     Route: 048
  2. DILAUDID [Concomitant]
     Active Substance: HYDROMORPHONE HYDROCHLORIDE
     Indication: PAIN
     Dosage: 4 MG, 3X/DAY (4MG TABLET, 3 TIMES A DAY BY MOUTH)
     Route: 048
  3. OXYCODONE [Concomitant]
     Active Substance: OXYCODONE
     Indication: PAIN
     Dosage: 30 MG, 4X/DAY (30MG TABLET, 1 TABLET 4 TIMES A DAY BY MOUTH)
     Route: 048
  4. INLYTA [Suspect]
     Active Substance: AXITINIB
     Indication: RENAL CANCER
     Dosage: 5 MG, 2X/DAY
     Route: 048
     Dates: start: 201707

REACTIONS (3)
  - Cough [Unknown]
  - Haemoptysis [Unknown]
  - Stomatitis [Unknown]

NARRATIVE: CASE EVENT DATE: 20170928
